FAERS Safety Report 10081210 (Version 2)
Quarter: 2014Q2

REPORT INFORMATION
  Report Type: Spontaneous
  Country: US (occurrence: US)
  Receive Date: 20140416
  Receipt Date: 20140430
  Transmission Date: 20141212
  Serious: Yes (Other)
  Sender: FDA-Public Use
  Company Number: US-PFIZER INC-2014103798

PATIENT
  Age: 66 Year
  Sex: Female
  Weight: 60 kg

DRUGS (2)
  1. LYRICA [Suspect]
     Indication: FIBROMYALGIA
     Dosage: 25 MG, UNK
  2. LYRICA [Suspect]
     Dosage: 200 MG, UNK

REACTIONS (21)
  - Systemic lupus erythematosus [Unknown]
  - Cardiac disorder [Unknown]
  - Nervousness [Unknown]
  - Anxiety [Unknown]
  - Depression [Unknown]
  - Hypoaesthesia [Unknown]
  - Alopecia [Unknown]
  - Insomnia [Unknown]
  - Weight decreased [Unknown]
  - Mood altered [Unknown]
  - Nerve injury [Unknown]
  - Paraesthesia [Unknown]
  - Micturition urgency [Unknown]
  - Asocial behaviour [Unknown]
  - Fatigue [Unknown]
  - Headache [Unknown]
  - Feeling of despair [Unknown]
  - Dry mouth [Unknown]
  - Screaming [Unknown]
  - Dyskinesia [Unknown]
  - Personality disorder [Unknown]
